FAERS Safety Report 23571617 (Version 3)
Quarter: 2024Q2

REPORT INFORMATION
  Report Type: Spontaneous
  Country: US (occurrence: US)
  Receive Date: 20240227
  Receipt Date: 20240510
  Transmission Date: 20240715
  Serious: No
  Sender: FDA-Public Use
  Company Number: US-MYLANLABS-2024M1015598

PATIENT
  Sex: Female
  Weight: 65.76 kg

DRUGS (3)
  1. TYRVAYA [Suspect]
     Active Substance: VARENICLINE TARTRATE
     Indication: Sjogren^s syndrome
     Dosage: 0.03 MILLIGRAM, BID (ONE SPRAY TO EACH NOSTRIL,)
     Route: 045
  2. TYRVAYA [Suspect]
     Active Substance: VARENICLINE TARTRATE
     Indication: Dry eye
  3. TYRVAYA [Suspect]
     Active Substance: VARENICLINE TARTRATE
     Indication: Keratitis

REACTIONS (4)
  - Sneezing [Unknown]
  - Throat irritation [Unknown]
  - Product packaging quantity issue [Unknown]
  - Product delivery mechanism issue [Unknown]
